FAERS Safety Report 8554989-X (Version None)
Quarter: 2012Q3

REPORT INFORMATION
  Report Type: 
  Country: None (occurrence: None)
  Receive Date: 20120731
  Receipt Date: 20120726
  Transmission Date: 20120928
  Serious: Yes (Life-Threatening, Hospitalization)
  Sender: FDA-Public Use
  Company Number: US-PFIZER INC-2012181834

PATIENT
  Age: 66 Year
  Sex: Male

DRUGS (3)
  1. DAUNORUBICIN HCL [Suspect]
     Indication: ACUTE MYELOID LEUKAEMIA
     Dosage: 435 MG,  (TOTAL)
     Route: 042
     Dates: start: 20120524
  2. CYTARABINE [Suspect]
     Indication: ACUTE MYELOID LEUKAEMIA
     Dosage: 3360 MG, (TOTAL)
     Dates: start: 20120524
  3. SPRYCEL [Suspect]
     Indication: ACUTE MYELOID LEUKAEMIA
     Dosage: 1200 MG, (TOTAL)
     Route: 048
     Dates: start: 20120524, end: 20120612

REACTIONS (4)
  - DECREASED APPETITE [None]
  - RENAL FAILURE ACUTE [None]
  - SEPSIS [None]
  - MELAENA [None]
